FAERS Safety Report 6832511-3 (Version None)
Quarter: 2010Q3

REPORT INFORMATION
  Report Type: 
  Country: None (occurrence: None)
  Receive Date: 20100712
  Receipt Date: 20070314
  Transmission Date: 20110219
  Serious: No
  Sender: FDA-Public Use
  Company Number: US-PFIZER INC-2007020664

PATIENT
  Sex: Female
  Weight: 86.18 kg

DRUGS (5)
  1. CHANTIX [Suspect]
     Indication: SMOKING CESSATION THERAPY
     Dates: start: 20070301
  2. WELLBUTRIN [Concomitant]
  3. DOXYCYCLINE [Concomitant]
  4. NEXIUM [Concomitant]
  5. ACIPHEX [Concomitant]

REACTIONS (3)
  - BLISTER [None]
  - RASH ERYTHEMATOUS [None]
  - WEIGHT INCREASED [None]
